FAERS Safety Report 16984058 (Version 3)
Quarter: 2019Q4

REPORT INFORMATION
  Report Type: Report from Study
  Country: DK (occurrence: DK)
  Receive Date: 20191101
  Receipt Date: 20191206
  Transmission Date: 20200122
  Serious: Yes (Hospitalization)
  Sender: FDA-Public Use
  Company Number: NVSC2019DK012850

PATIENT
  Age: 56 Year
  Sex: Male
  Weight: 101.7 kg

DRUGS (2)
  1. DABRAFENIB [Suspect]
     Active Substance: DABRAFENIB
     Indication: NEOPLASM MALIGNANT
     Dosage: 75 MG, BID
     Route: 048
     Dates: start: 20180612
  2. TRAMETINIB [Suspect]
     Active Substance: TRAMETINIB
     Indication: NEOPLASM MALIGNANT
     Dosage: 1 MG, QD
     Route: 048
     Dates: start: 20180612

REACTIONS (1)
  - Erythema nodosum [Recovered/Resolved]

NARRATIVE: CASE EVENT DATE: 20191019
